FAERS Safety Report 9766508 (Version 1)
Quarter: 2013Q4

REPORT INFORMATION
  Report Type: Spontaneous
  Country: US (occurrence: US)
  Receive Date: 20131217
  Receipt Date: 20131217
  Transmission Date: 20140711
  Serious: No
  Sender: FDA-Public Use
  Company Number: US-BIOGENIDEC-2013BI118175

PATIENT
  Age: 60 Year
  Sex: Female

DRUGS (20)
  1. TECFIDERA [Suspect]
     Indication: MULTIPLE SCLEROSIS
     Route: 048
     Dates: start: 20131106
  2. AZELASTINE NASAL SPRAY [Concomitant]
  3. ATENOLOL [Concomitant]
  4. CLONAZEPAM [Concomitant]
  5. SETRALINE [Concomitant]
  6. PREVACID [Concomitant]
  7. ESTROPIPATE [Concomitant]
  8. TRAMADOL [Concomitant]
  9. LEVOTHYROXINE [Concomitant]
  10. SAVELLA [Concomitant]
  11. ZOLPIDEM [Concomitant]
  12. BUPROPION [Concomitant]
  13. ASPITIN [Concomitant]
  14. BENEFIBER [Concomitant]
  15. CALCIUM + D [Concomitant]
  16. FISH OIL [Concomitant]
  17. MIRALAX [Concomitant]
  18. PHAZYME [Concomitant]
  19. ROPINIROLE [Concomitant]
  20. TROSPIUM CL [Concomitant]

REACTIONS (3)
  - Abdominal distension [Unknown]
  - Flushing [Unknown]
  - Abdominal pain [Unknown]
